FAERS Safety Report 17930625 (Version 13)
Quarter: 2021Q3

REPORT INFORMATION
  Report Type: Report from Study
  Country: DE (occurrence: DE)
  Receive Date: 20200623
  Receipt Date: 20210719
  Transmission Date: 20211014
  Serious: Yes (Life-Threatening, Other)
  Sender: FDA-Public Use
  Company Number: PHHY2019DE086294

PATIENT
  Sex: Female
  Weight: 64 kg

DRUGS (11)
  1. KISQALI [Suspect]
     Active Substance: RIBOCICLIB
     Dosage: 200 MG, QD  (21 DAYS INTAKE, 7 DAYS PAUSE)
     Route: 048
     Dates: start: 20191014, end: 20191201
  2. KISQALI [Suspect]
     Active Substance: RIBOCICLIB
     Dosage: 200 MG, QD  (21 DAYS INTAKE, 7 DAYS PAUSE)
     Route: 048
     Dates: start: 20191223, end: 20200130
  3. KISQALI [Suspect]
     Active Substance: RIBOCICLIB
     Indication: BREAST CANCER METASTATIC
     Dosage: 600 MG, QD (21 DAYS INTAKE, 7 DAYS PAUSE)
     Route: 048
     Dates: start: 20190318, end: 20190401
  4. KISQALI [Suspect]
     Active Substance: RIBOCICLIB
     Dosage: 400 MG, QD  (21 DAYS INTAKE, 7 DAYS PAUSE)
     Route: 048
     Dates: start: 20190514, end: 20190616
  5. ANASTROZOLE. [Suspect]
     Active Substance: ANASTROZOLE
     Indication: BREAST CANCER METASTATIC
     Dosage: 1 MG, QD (ONGOING)
     Route: 048
     Dates: start: 20190318, end: 20190718
  6. FRESUBIN [Concomitant]
     Active Substance: AMINO ACIDS\DEXTROSE\ELECTROLYTES NOS\SOYBEAN OIL\VITAMINS
     Indication: PRODUCT USED FOR UNKNOWN INDICATION
     Dosage: 200 ML, QD (2?3)
     Route: 065
     Dates: start: 20200319
  7. KISQALI [Suspect]
     Active Substance: RIBOCICLIB
     Dosage: 200 MG, QD  (21 DAYS INTAKE, 7 DAYS PAUSE)
     Route: 048
     Dates: start: 20190719, end: 20190912
  8. KISQALI [Suspect]
     Active Substance: RIBOCICLIB
     Dosage: 200 MG, QD  (21 DAYS INTAKE, 7 DAYS PAUSE)
     Route: 048
     Dates: start: 20190916, end: 20190929
  9. FULVESTRANT. [Suspect]
     Active Substance: FULVESTRANT
     Indication: BREAST CANCER METASTATIC
     Dosage: 250 MG, QD (EVERY 4 WEEKS) (ONGOING)
     Route: 030
     Dates: start: 20190719, end: 20200120
  10. KISQALI [Suspect]
     Active Substance: RIBOCICLIB
     Dosage: 400 MG, QD (21 DAYS INTAKE, 7 DAYS PAUSE)
     Route: 048
     Dates: start: 20190415, end: 20190429
  11. KISQALI [Suspect]
     Active Substance: RIBOCICLIB
     Dosage: 200 MG, QD  (21 DAYS INTAKE, 7 DAYS PAUSE)
     Route: 048
     Dates: start: 20190617, end: 20190718

REACTIONS (14)
  - Musculoskeletal discomfort [Recovered/Resolved]
  - Vomiting [Unknown]
  - Nausea [Recovered/Resolved]
  - Fatigue [Not Recovered/Not Resolved]
  - Neutropenia [Recovered/Resolved]
  - Decreased appetite [Unknown]
  - Polyneuropathy [Unknown]
  - Neutropenia [Recovered/Resolved]
  - Neutropenia [Recovered/Resolved]
  - Weight decreased [Not Recovered/Not Resolved]
  - Vomiting [Recovered/Resolved]
  - Rash [Not Recovered/Not Resolved]
  - Neutropenia [Recovered/Resolved]
  - Neutropenia [Recovered/Resolved]

NARRATIVE: CASE EVENT DATE: 201903
